FAERS Safety Report 25743921 (Version 2)
Quarter: 2025Q3

REPORT INFORMATION
  Report Type: Report from Study
  Country: CA (occurrence: CA)
  Receive Date: 20250831
  Receipt Date: 20250922
  Transmission Date: 20251020
  Serious: No
  Sender: ABBVIE
  Company Number: CA-ABBVIE-6434977

PATIENT
  Age: 41 Year
  Sex: Female

DRUGS (2)
  1. RINVOQ [Suspect]
     Active Substance: UPADACITINIB
     Indication: Ankylosing spondylitis
     Dosage: FORM STRENGTH: 15 MG
     Route: 048
     Dates: end: 202505
  2. RINVOQ [Suspect]
     Active Substance: UPADACITINIB
     Indication: Ankylosing spondylitis
     Dosage: FORM STRENGTH: 15 MG
     Route: 048
     Dates: start: 202506, end: 202508

REACTIONS (3)
  - Diarrhoea [Unknown]
  - Metabolic surgery [Unknown]
  - Infection [Unknown]

NARRATIVE: CASE EVENT DATE: 20250527
